FAERS Safety Report 9840181 (Version 1)
Quarter: 2014Q1

REPORT INFORMATION
  Report Type: Spontaneous
  Country: US (occurrence: None)
  Receive Date: 20140121
  Receipt Date: 20140121
  Transmission Date: 20141002
  Serious: Yes (Hospitalization)
  Sender: FDA-Public Use
  Company Number: None

PATIENT
  Age: 71 Year
  Sex: Male
  Weight: 74.8 kg

DRUGS (1)
  1. CIPROFLOXACIN [Suspect]
     Indication: VASCULAR OPERATION
     Route: 048
     Dates: start: 20101028, end: 20101105

REACTIONS (1)
  - Diarrhoea [None]
